FAERS Safety Report 12447405 (Version 1)
Quarter: 2016Q2

REPORT INFORMATION
  Report Type: Spontaneous
  Country: US (occurrence: US)
  Receive Date: 20160608
  Receipt Date: 20160608
  Transmission Date: 20160815
  Serious: No
  Sender: FDA-Public Use
  Company Number: US-BEH-2016070079

PATIENT
  Sex: Female

DRUGS (1)
  1. HIZENTRA [Suspect]
     Active Substance: HUMAN IMMUNOGLOBULIN G
     Indication: PRODUCT USED FOR UNKNOWN INDICATION
     Dosage: 6 G, QW IN 2 SITES USING F900 FOR TOTAL TIME OF DELIVERY ~ 1 HOUR ON SATURDAY
     Route: 065

REACTIONS (5)
  - Rash generalised [Unknown]
  - Headache [Recovering/Resolving]
  - Pruritus [Unknown]
  - Nausea [Unknown]
  - Chills [Unknown]
